FAERS Safety Report 4309616-4 (Version None)
Quarter: 2004Q1

REPORT INFORMATION
  Report Type: 
  Country: None (occurrence: None)
  Receive Date: 20040302
  Receipt Date: 20040209
  Transmission Date: 20041129
  Serious: Yes (Hospitalization)
  Sender: FDA-Public Use
  Company Number: WAES 0402USA00725

PATIENT
  Age: 77 Year
  Sex: Female

DRUGS (1)
  1. VIOXX [Suspect]
     Indication: ARTHRITIS
     Route: 048
     Dates: start: 20030201, end: 20031101

REACTIONS (5)
  - ANAEMIA [None]
  - GASTRIC ULCER [None]
  - HELICOBACTER GASTRITIS [None]
  - RECTAL HAEMORRHAGE [None]
  - WEIGHT DECREASED [None]
